FAERS Safety Report 8560536-9 (Version None)
Quarter: 2012Q3

REPORT INFORMATION
  Report Type: 
  Country: None (occurrence: None)
  Receive Date: 20120802
  Receipt Date: 20120724
  Transmission Date: 20120928
  Serious: Yes (Other)
  Sender: FDA-Public Use
  Company Number: US-ASTRAZENECA-2010SE13573

PATIENT
  Age: 78 Year
  Sex: Female

DRUGS (1)
  1. NEXIUM [Suspect]
     Route: 048

REACTIONS (6)
  - PANCREATITIS [None]
  - GASTROOESOPHAGEAL REFLUX DISEASE [None]
  - APHONIA [None]
  - DRUG DOSE OMISSION [None]
  - HAND FRACTURE [None]
  - BRONCHITIS [None]
